FAERS Safety Report 7747649-6 (Version None)
Quarter: 2011Q3

REPORT INFORMATION
  Report Type: 
  Country: None (occurrence: None)
  Receive Date: 20110913
  Receipt Date: 20110906
  Transmission Date: 20111222
  Serious: Yes (Other)
  Sender: FDA-Public Use
  Company Number: US-US-EMD SERONO, INC.-230999J09USA

PATIENT
  Sex: Female

DRUGS (5)
  1. REBIF [Suspect]
     Indication: MULTIPLE SCLEROSIS
     Route: 058
     Dates: start: 20060906
  2. LEVETIRACETAM [Suspect]
     Indication: EPILEPSY
  3. LEVETIRACETAM [Suspect]
  4. LEVETIRACETAM [Suspect]
  5. DEPAKOTE [Concomitant]
     Indication: EPILEPSY

REACTIONS (3)
  - RED BLOOD CELL COUNT DECREASED [None]
  - WHITE BLOOD CELL COUNT DECREASED [None]
  - INJECTION SITE HAEMATOMA [None]
